FAERS Safety Report 19826540 (Version 1)
Quarter: 2021Q3

REPORT INFORMATION
  Report Type: Spontaneous
  Country: AU (occurrence: AU)
  Receive Date: 20210913
  Receipt Date: 20210913
  Transmission Date: 20211014
  Serious: Yes (Other)
  Sender: FDA-Public Use
  Company Number: AU-PRAGMA-2021-AU-000295

PATIENT
  Age: 41 Year
  Sex: Male

DRUGS (1)
  1. CEPHALEXIN (NON?SPECIFIC) [Suspect]
     Active Substance: CEPHALEXIN
     Indication: SKIN LACERATION

REACTIONS (1)
  - Drug reaction with eosinophilia and systemic symptoms [Recovered/Resolved]
